FAERS Safety Report 6682285-4 (Version None)
Quarter: 2010Q2

REPORT INFORMATION
  Report Type: 
  Country: None (occurrence: None)
  Receive Date: 20100414
  Receipt Date: 20100414
  Transmission Date: 20101027
  Serious: Yes (Hospitalization, Disabling, Other)
  Sender: FDA-Public Use
  Company Number: None

PATIENT
  Age: 76 Year
  Sex: Female
  Weight: 65.7716 kg

DRUGS (1)
  1. LEVAQUIN [Suspect]
     Indication: UPPER RESPIRATORY TRACT INFECTION
     Dosage: 250 MG MG 1 DAY 10 DAYS ORAL
     Route: 048
     Dates: start: 20090206, end: 20090214

REACTIONS (2)
  - MULTIPLE FRACTURES [None]
  - TENDON RUPTURE [None]
